FAERS Safety Report 12732566 (Version 1)
Quarter: 2016Q3

REPORT INFORMATION
  Report Type: Spontaneous
  Country: TR (occurrence: TR)
  Receive Date: 20160912
  Receipt Date: 20160912
  Transmission Date: 20161109
  Serious: Yes (Life-Threatening, Hospitalization, Other)
  Sender: FDA-Public Use
  Company Number: TR-CMP PHARMA-2016CMP00002

PATIENT
  Age: 26 Year
  Sex: Female

DRUGS (1)
  1. ISONIAZID. [Suspect]
     Active Substance: ISONIAZID
     Dosage: 7.5 G, ONCE
     Route: 065

REACTIONS (14)
  - Head injury [Unknown]
  - Extradural haematoma [Unknown]
  - Fall [Recovered/Resolved]
  - Generalised tonic-clonic seizure [None]
  - Lactic acidosis [Recovered/Resolved]
  - Sinus tachycardia [None]
  - Blood glucose increased [None]
  - Oxygen saturation decreased [None]
  - Suicide attempt [Recovered/Resolved]
  - Toxicity to various agents [Recovered/Resolved]
  - Blood sodium increased [None]
  - White blood cell count increased [None]
  - Intentional overdose [Recovered/Resolved]
  - Cephalhaematoma [None]
